FAERS Safety Report 11266231 (Version 1)
Quarter: 2015Q3

REPORT INFORMATION
  Report Type: Spontaneous
  Country: US (occurrence: US)
  Receive Date: 20150713
  Receipt Date: 20150713
  Transmission Date: 20151125
  Serious: No
  Sender: FDA-Public Use
  Company Number: US-ASTRAZENECA-2015SE64407

PATIENT
  Sex: Female
  Weight: 74.4 kg

DRUGS (1)
  1. BYDUREON [Suspect]
     Active Substance: EXENATIDE
     Indication: TYPE 2 DIABETES MELLITUS
     Route: 058
     Dates: start: 20150511

REACTIONS (6)
  - Thirst decreased [Unknown]
  - Drug dose omission [Unknown]
  - Weight decreased [Unknown]
  - Gastritis [Unknown]
  - Decreased appetite [Unknown]
  - Abdominal distension [Unknown]
